FAERS Safety Report 7015398-8 (Version None)
Quarter: 2010Q3

REPORT INFORMATION
  Report Type: 
  Country: None (occurrence: None)
  Receive Date: 20100927
  Receipt Date: 20100914
  Transmission Date: 20110219
  Serious: Yes (Other)
  Sender: FDA-Public Use
  Company Number: PHHY2010US28550

PATIENT
  Age: 58 Year
  Sex: Female

DRUGS (2)
  1. ZOMETA [Suspect]
     Indication: BREAST CANCER
     Dosage: 4 MG EVERY 28 DAYS
     Route: 042
     Dates: start: 20090102
  2. ZOMETA [Suspect]
     Dosage: UNK
     Dates: start: 20100909

REACTIONS (5)
  - ENDODONTIC PROCEDURE [None]
  - GINGIVAL SWELLING [None]
  - INSOMNIA [None]
  - PAIN IN JAW [None]
  - TOOTHACHE [None]
